FAERS Safety Report 7303864-7 (Version None)
Quarter: 2011Q1

REPORT INFORMATION
  Report Type: 
  Country: None (occurrence: None)
  Receive Date: 20110221
  Receipt Date: 20110214
  Transmission Date: 20110831
  Serious: Yes (Congenital Anomaly)
  Sender: FDA-Public Use
  Company Number: A0914468A

PATIENT
  Sex: Female
  Weight: 3.1 kg

DRUGS (7)
  1. IRON SULFATETHIAMIN COMPOUND TAB [Concomitant]
  2. AMOXICILLIN [Concomitant]
  3. MACROBID [Concomitant]
  4. KLONOPIN [Concomitant]
  5. BRETHINE [Concomitant]
  6. PAXIL [Suspect]
     Indication: DEPRESSION
     Dosage: 30MG PER DAY
     Route: 064
  7. PRENATAL VITAMINS [Concomitant]

REACTIONS (1)
  - ATRIAL SEPTAL DEFECT [None]
